FAERS Safety Report 5709559-5 (Version None)
Quarter: 2008Q2

REPORT INFORMATION
  Report Type: 
  Country: None (occurrence: None)
  Receive Date: 20080418
  Receipt Date: 20080411
  Transmission Date: 20081010
  Serious: Yes (Life-Threatening)
  Sender: FDA-Public Use
  Company Number: US-MERCK-0804USA03678

PATIENT
  Age: 69 Year
  Sex: Female

DRUGS (2)
  1. HYDROCORTONE [Suspect]
     Route: 042
  2. HYDROCORTONE [Suspect]
     Route: 065

REACTIONS (1)
  - PHAEOCHROMOCYTOMA [None]
